FAERS Safety Report 16568539 (Version 2)
Quarter: 2019Q3

REPORT INFORMATION
  Report Type: Spontaneous
  Country: JP (occurrence: JP)
  Receive Date: 20190712
  Receipt Date: 20190717
  Transmission Date: 20191004
  Serious: Yes (Life-Threatening, Hospitalization)
  Sender: FDA-Public Use
  Company Number: PHHY2019JP160630

PATIENT
  Age: 66 Year
  Sex: Male
  Weight: 62 kg

DRUGS (3)
  1. QUETIAPINE. [Suspect]
     Active Substance: QUETIAPINE
     Dosage: 25 MG, UNK
     Route: 065
     Dates: start: 201708
  2. QUETIAPINE. [Suspect]
     Active Substance: QUETIAPINE
     Indication: DELIRIUM
     Dosage: 12.5 MG, UNK
     Route: 065
     Dates: start: 201707
  3. MIANSERIN [Concomitant]
     Active Substance: MIANSERIN
     Indication: DEPRESSION
     Dosage: UNK
     Route: 065

REACTIONS (10)
  - Gastrointestinal necrosis [Unknown]
  - Diabetic ketoacidosis [Unknown]
  - Waist circumference increased [Unknown]
  - Abdominal pain [Unknown]
  - Fall [Unknown]
  - Product use in unapproved indication [Unknown]
  - Somnolence [Unknown]
  - Polyuria [Unknown]
  - Intestinal ischaemia [Unknown]
  - Thirst [Unknown]
